FAERS Safety Report 22226294 (Version 3)
Quarter: 2023Q2

REPORT INFORMATION
  Report Type: Other
  Country: DE (occurrence: None)
  Receive Date: 20230419
  Receipt Date: 20230626
  Transmission Date: 20230721
  Serious: Yes (Other)
  Sender: FDA-Public Use
  Company Number: DE-ROCHE-3163421

PATIENT
  Age: 51 Year
  Sex: Female

DRUGS (5)
  1. OCREVUS [Suspect]
     Active Substance: OCRELIZUMAB
     Indication: Primary progressive multiple sclerosis
     Route: 042
     Dates: start: 20211223
  2. GABAPENTIN [Concomitant]
     Active Substance: GABAPENTIN
     Dosage: (1-1-1),
  3. PROPIONIC ACID [Concomitant]
     Active Substance: PROPIONIC ACID
     Dosage: (1-0-1)
  4. CHOLECALCIFEROL [Concomitant]
     Active Substance: CHOLECALCIFEROL
     Dosage: (1X/WEEK)
  5. ACETAMINOPHEN [Concomitant]
     Active Substance: ACETAMINOPHEN

REACTIONS (10)
  - Multiple sclerosis [Recovered/Resolved]
  - Gastrointestinal motility disorder [Recovered/Resolved]
  - Anal incontinence [Recovered/Resolved]
  - Cystitis noninfective [Recovered/Resolved]
  - Nervous system disorder [Recovered/Resolved]
  - Fall [Unknown]
  - Meniscus injury [Recovered/Resolved]
  - COVID-19 [Recovered/Resolved]
  - Influenza like illness [Recovered/Resolved]
  - Limb discomfort [Recovered/Resolved]

NARRATIVE: CASE EVENT DATE: 20220401
